FAERS Safety Report 14127751 (Version 2)
Quarter: 2017Q4

REPORT INFORMATION
  Report Type: Report from Study
  Country: US (occurrence: US)
  Receive Date: 20171026
  Receipt Date: 20171030
  Transmission Date: 20180321
  Serious: Yes (Hospitalization)
  Sender: FDA-Public Use
  Company Number: US-ROCHE-2011009

PATIENT
  Age: 61 Year
  Sex: Male

DRUGS (5)
  1. PREDNISONE. [Concomitant]
     Active Substance: PREDNISONE
     Dosage: TITRATED DOWN FROM ORIGINAL PRESCRIPTION ;ONGOING: NO
     Route: 065
     Dates: end: 20170915
  2. CELLCEPT [Suspect]
     Active Substance: MYCOPHENOLATE MOFETIL\MYCOPHENOLATE MOFETIL HYDROCHLORIDE
     Indication: PRODUCT USED FOR UNKNOWN INDICATION
     Dosage: NO
     Route: 065
  3. RITUXAN [Suspect]
     Active Substance: RITUXIMAB
     Dosage: ON DAY 1 AND DAY 15
     Route: 042
  4. RITUXAN [Suspect]
     Active Substance: RITUXIMAB
     Dosage: YES
     Route: 042
     Dates: start: 20170824
  5. RITUXAN [Suspect]
     Active Substance: RITUXIMAB
     Indication: PEMPHIGUS
     Dosage: YES
     Route: 042
     Dates: start: 20170808

REACTIONS (8)
  - Dyspnoea [Not Recovered/Not Resolved]
  - Cardiac flutter [Recovered/Resolved]
  - Reflux laryngitis [Recovered/Resolved]
  - Intentional product use issue [Unknown]
  - Atrial fibrillation [Recovered/Resolved]
  - Off label use [Unknown]
  - Drug ineffective [Unknown]
  - Fatigue [Recovered/Resolved]

NARRATIVE: CASE EVENT DATE: 20170827
